FAERS Safety Report 7012721-5 (Version None)
Quarter: 2010Q3

REPORT INFORMATION
  Report Type: 
  Country: None (occurrence: None)
  Receive Date: 20100922
  Receipt Date: 20100909
  Transmission Date: 20110219
  Serious: Yes (Hospitalization)
  Sender: FDA-Public Use
  Company Number: UTC-001426

PATIENT
  Age: 57 Year
  Sex: Female
  Weight: 101.6 kg

DRUGS (11)
  1. REMODULIN [Suspect]
     Indication: PULMONARY ARTERIAL HYPERTENSION
     Dosage: 191.52 UG/KG (0.133 UG/KG,1 IN 1 MIN),SUBCUTANEOUS
     Route: 058
     Dates: start: 20100118
  2. LASIX [Concomitant]
  3. REVATIO [Concomitant]
  4. LIPITOR [Concomitant]
  5. LYRICA [Concomitant]
  6. ALLEGRA [Concomitant]
  7. POTASSIUM (POTASSIUM) [Concomitant]
  8. WELLBUTRIN [Concomitant]
  9. NEXIUM [Concomitant]
  10. VITAMIN B12 [Concomitant]
  11. CHROMAGEN (CHROMAGEN /00555001/) [Concomitant]

REACTIONS (2)
  - ANAEMIA [None]
  - INFLUENZA LIKE ILLNESS [None]
